FAERS Safety Report 10240773 (Version 3)
Quarter: 2014Q3

REPORT INFORMATION
  Report Type: Spontaneous
  Country: US (occurrence: US)
  Receive Date: 20140617
  Receipt Date: 20140801
  Transmission Date: 20150326
  Serious: No
  Sender: FDA-Public Use
  Company Number: US-PFIZER INC-2014161893

PATIENT
  Age: 67 Year
  Sex: Male
  Weight: 81.63 kg

DRUGS (3)
  1. TIKOSYN [Suspect]
     Active Substance: DOFETILIDE
     Indication: ATRIAL FIBRILLATION
     Dosage: 500 UG, 2X/DAY
     Route: 048
     Dates: start: 2011
  2. WARFARIN [Concomitant]
     Active Substance: WARFARIN
     Indication: ANTICOAGULANT THERAPY
     Dosage: 2 MG, (THREE TIMES A WEEK)
  3. WARFARIN [Concomitant]
     Active Substance: WARFARIN
     Dosage: 4 MG (NEXT FOUR DAYS), FOUR TIMES A WEEK

REACTIONS (1)
  - Drug ineffective [Unknown]
